FAERS Safety Report 7892626-8 (Version None)
Quarter: 2011Q4

REPORT INFORMATION
  Report Type: 
  Country: None (occurrence: None)
  Receive Date: 20111019
  Receipt Date: 20101103
  Transmission Date: 20120403
  Serious: Yes (Hospitalization, Other)
  Sender: FDA-Public Use
  Company Number: 2011030071

PATIENT

DRUGS (2)
  1. VIVAGLOBIN [Suspect]
     Indication: HYPOGAMMAGLOBULINAEMIA
     Dosage: 3 ML 2/WEEK, 1 SITE VIA MANUAL PUSH (3.84 GM/MO)OVER3-5 MINUTES, SUBCUTANEOUS)
     Route: 058
     Dates: start: 20061031
  2. VIVAGLOBIN [Suspect]
     Indication: DIGEORGE'S SYNDROME
     Dosage: 3 ML 2/WEEK, 1 SITE VIA MANUAL PUSH (3.84 GM/MO)OVER3-5 MINUTES, SUBCUTANEOUS)
     Route: 058
     Dates: start: 20061031

REACTIONS (4)
  - RESPIRATORY TRACT INFECTION [None]
  - HAEMOPHILUS SEPSIS [None]
  - CONJUNCTIVITIS INFECTIVE [None]
  - LOBAR PNEUMONIA [None]
